FAERS Safety Report 9113580 (Version 1)
Quarter: 2013Q1

REPORT INFORMATION
  Report Type: Spontaneous
  Country: US (occurrence: US)
  Receive Date: 20130201
  Receipt Date: 20130201
  Transmission Date: 20140127
  Serious: No
  Sender: FDA-Public Use
  Company Number: US-PFIZER INC-2013039276

PATIENT
  Age: 59 Year
  Sex: Male

DRUGS (2)
  1. PRISTIQ [Suspect]
     Indication: ANXIETY
     Dosage: 50 MG, DAILY
  2. PRISTIQ [Suspect]
     Indication: STRESS

REACTIONS (5)
  - Withdrawal syndrome [Unknown]
  - Asthenia [Unknown]
  - Dizziness [Unknown]
  - Diarrhoea [Unknown]
  - Influenza like illness [Unknown]
